FAERS Safety Report 12455014 (Version 3)
Quarter: 2016Q2

REPORT INFORMATION
  Report Type: Spontaneous
  Country: PR (occurrence: PR)
  Receive Date: 20160610
  Receipt Date: 20160615
  Transmission Date: 20160815
  Serious: No
  Sender: FDA-Public Use
  Company Number: PR-PFIZER INC-2016285637

PATIENT
  Age: 75 Year
  Sex: Female
  Weight: 52 kg

DRUGS (1)
  1. BOSULIF [Suspect]
     Active Substance: BOSUTINIB MONOHYDRATE
     Indication: CHRONIC MYELOID LEUKAEMIA
     Dosage: 500 MG, 1X/DAY (500 MG TABLET) (DAILY)
     Route: 048
     Dates: start: 20151222, end: 20160607

REACTIONS (5)
  - Nausea [Unknown]
  - Asthenia [Unknown]
  - Vomiting [Unknown]
  - Abdominal pain upper [Unknown]
  - Diarrhoea [Not Recovered/Not Resolved]
